FAERS Safety Report 25815253 (Version 2)
Quarter: 2025Q4

REPORT INFORMATION
  Report Type: Spontaneous
  Country: US (occurrence: US)
  Receive Date: 20250918
  Receipt Date: 20251003
  Transmission Date: 20260118
  Serious: No
  Sender: TOLMAR
  Company Number: US-Tolmar-TLM-2025-06066

PATIENT

DRUGS (2)
  1. ELIGARD [Suspect]
     Active Substance: LEUPROLIDE ACETATE
     Indication: Product used for unknown indication
     Dosage: EXPIRATION DATES: 31-OCT-2026; UNK; UNK?NDC: 62935-227-10??DOSE NOT ADMINISTERED
  2. DEVICE [Suspect]
     Active Substance: DEVICE
     Indication: Product used for unknown indication
     Dosage: EXPIRATION DATES: 31-OCT-2026; UNK; UNK?NDC: 62935-227-10

REACTIONS (2)
  - Intercepted product preparation error [Unknown]
  - Device leakage [Unknown]
